FAERS Safety Report 16106506 (Version 1)
Quarter: 2019Q1

REPORT INFORMATION
  Report Type: Report from Study
  Country: US (occurrence: US)
  Receive Date: 20190322
  Receipt Date: 20190322
  Transmission Date: 20190418
  Serious: Yes (Hospitalization)
  Sender: FDA-Public Use
  Company Number: US-EXELIXIS-CABO-19019299

PATIENT
  Sex: Male

DRUGS (17)
  1. DIPHENHYDRAMINE. [Concomitant]
     Active Substance: DIPHENHYDRAMINE
  2. CABOMETYX [Suspect]
     Active Substance: CABOZANTINIB S-MALATE
     Dosage: 60 MG, QD
     Route: 048
     Dates: start: 201903
  3. PROSCAR [Concomitant]
     Active Substance: FINASTERIDE
  4. ALLOPURINOL. [Concomitant]
     Active Substance: ALLOPURINOL
  5. METOPROLOL SUCCINATE. [Concomitant]
     Active Substance: METOPROLOL SUCCINATE
  6. FLOMAX [Concomitant]
     Active Substance: TAMSULOSIN HYDROCHLORIDE
  7. ATENOLOL. [Concomitant]
     Active Substance: ATENOLOL
  8. VITAMIN D [Concomitant]
     Active Substance: CHOLECALCIFEROL
  9. RISPERDAL [Concomitant]
     Active Substance: RISPERIDONE
  10. FLUOXETINE [Concomitant]
     Active Substance: FLUOXETINE HYDROCHLORIDE
  11. COGENTIN [Concomitant]
     Active Substance: BENZTROPINE MESYLATE
  12. CABOMETYX [Suspect]
     Active Substance: CABOZANTINIB S-MALATE
     Indication: RENAL CANCER
     Dosage: 60 MG, QD
     Route: 048
     Dates: start: 20190209, end: 201903
  13. NORCO [Concomitant]
     Active Substance: ACETAMINOPHEN\HYDROCODONE BITARTRATE
  14. ONDANSETRON [Concomitant]
     Active Substance: ONDANSETRON
  15. SYNTHROID [Concomitant]
     Active Substance: LEVOTHYROXINE SODIUM
  16. DIOVAN [Concomitant]
     Active Substance: VALSARTAN
  17. SIMVASTATIN. [Concomitant]
     Active Substance: SIMVASTATIN

REACTIONS (4)
  - Pneumonia [Unknown]
  - Decreased appetite [Unknown]
  - Urinary tract infection [Unknown]
  - Diarrhoea [Recovering/Resolving]
